FAERS Safety Report 15647174 (Version 2)
Quarter: 2018Q4

REPORT INFORMATION
  Report Type: Report from Study
  Country: DE (occurrence: DE)
  Receive Date: 20181122
  Receipt Date: 20181129
  Transmission Date: 20190205
  Serious: Yes (Hospitalization)
  Sender: FDA-Public Use
  Company Number: DE-BAXTER-2018BAX021640

PATIENT
  Age: 80 Year
  Sex: Female
  Weight: 102 kg

DRUGS (33)
  1. ENDOXAN 1G [Suspect]
     Active Substance: CYCLOPHOSPHAMIDE
     Dosage: 1600 MG, UNK
     Route: 041
     Dates: start: 20180723, end: 20180723
  2. RIXIMYO [Suspect]
     Active Substance: RITUXIMAB
     Dosage: 765 MG, UNK
     Route: 041
     Dates: start: 20180813, end: 20180813
  3. VINCRISTINE [Suspect]
     Active Substance: VINCRISTINE
     Dosage: 2 MG, UNK
     Route: 041
     Dates: start: 20180903, end: 20180903
  4. DOXORUBICIN [Suspect]
     Active Substance: DOXORUBICIN
     Dosage: 76.5 MG, UNK
     Route: 041
     Dates: start: 20180813, end: 20180813
  5. PREDNISONE. [Suspect]
     Active Substance: PREDNISONE
     Indication: DIFFUSE LARGE B-CELL LYMPHOMA
     Dosage: 500 MG, UNK
     Route: 048
     Dates: start: 20180723, end: 20180727
  6. SYMBICORT [Concomitant]
     Active Substance: BUDESONIDE\FORMOTEROL FUMARATE DIHYDRATE
     Indication: ASTHMA
     Dosage: UNK
     Route: 048
     Dates: start: 2008
  7. JODETTEN [Concomitant]
     Indication: PRODUCT USED FOR UNKNOWN INDICATION
     Dosage: UNK
     Route: 048
     Dates: start: 2008
  8. DOXORUBICIN [Suspect]
     Active Substance: DOXORUBICIN
     Dosage: 51 MG, UNK
     Route: 041
     Dates: start: 20180903, end: 20180903
  9. ENDOXAN 1G [Suspect]
     Active Substance: CYCLOPHOSPHAMIDE
     Dosage: 1142 MG, UNK
     Route: 041
     Dates: start: 20180903, end: 20180903
  10. VINCRISTINE [Suspect]
     Active Substance: VINCRISTINE
     Indication: PRODUCT USED FOR UNKNOWN INDICATION
     Dosage: 2 MG, UNK
     Route: 041
     Dates: start: 20180618, end: 20180618
  11. PARACETAMOL [Concomitant]
     Active Substance: ACETAMINOPHEN
     Indication: PROPHYLAXIS
     Dosage: UNK
     Route: 048
     Dates: start: 20180618
  12. RIXIMYO [Suspect]
     Active Substance: RITUXIMAB
     Indication: DIFFUSE LARGE B-CELL LYMPHOMA
     Dosage: 780 MG, (INFUSION RATE 3.25 (ML/MIN))
     Route: 041
     Dates: start: 20180618, end: 20180618
  13. RIXIMYO [Suspect]
     Active Substance: RITUXIMAB
     Dosage: 760 MG, INFUSION RATE 1.5 (ML/MIN)
     Route: 041
     Dates: start: 20181011
  14. XARELTO [Suspect]
     Active Substance: RIVAROXABAN
     Indication: CARDIAC FAILURE
     Dosage: UNK
     Route: 048
     Dates: start: 20180702
  15. GRANISETRON [Concomitant]
     Active Substance: GRANISETRON
     Indication: PROPHYLAXIS
     Dosage: UNK
     Route: 042
     Dates: start: 20180618
  16. ENDOXAN 1G [Suspect]
     Active Substance: CYCLOPHOSPHAMIDE
     Indication: PRODUCT USED FOR UNKNOWN INDICATION
     Dosage: 1600 MG, (INFUSION RATE 26.6 ML/MIN)
     Route: 041
     Dates: start: 20180618, end: 20180618
  17. ENDOXAN 1G [Suspect]
     Active Substance: CYCLOPHOSPHAMIDE
     Indication: DIFFUSE LARGE B-CELL LYMPHOMA
     Dosage: 1600 MG, UNK
     Route: 041
     Dates: start: 20180813, end: 20180813
  18. RIXIMYO [Suspect]
     Active Substance: RITUXIMAB
     Indication: PRODUCT USED FOR UNKNOWN INDICATION
     Dosage: 761 MG, UNK
     Route: 041
     Dates: start: 20180903, end: 20180903
  19. RIXIMYO [Suspect]
     Active Substance: RITUXIMAB
     Dosage: 765 MG, UNK
     Route: 041
     Dates: start: 20180723, end: 20180723
  20. VINCRISTINE [Suspect]
     Active Substance: VINCRISTINE
     Indication: DIFFUSE LARGE B-CELL LYMPHOMA
     Dosage: 2 MG, UNK
     Route: 041
     Dates: start: 20180813, end: 20180813
  21. DOXORUBICIN [Suspect]
     Active Substance: DOXORUBICIN
     Indication: PRODUCT USED FOR UNKNOWN INDICATION
     Dosage: 104 MG, (INFUSION RATE 6.9 ML/MIN)
     Route: 041
     Dates: start: 20180618, end: 20180618
  22. DOXORUBICIN [Suspect]
     Active Substance: DOXORUBICIN
     Indication: DIFFUSE LARGE B-CELL LYMPHOMA
     Dosage: 102 MG, UNK
     Route: 041
     Dates: start: 20180723, end: 20180723
  23. PREDNISONE. [Suspect]
     Active Substance: PREDNISONE
     Dosage: 500 MG, UNK
     Route: 048
     Dates: start: 20180813, end: 20180817
  24. PANTOZOL [Concomitant]
     Active Substance: PANTOPRAZOLE SODIUM
     Indication: PROPHYLAXIS
     Dosage: 40 OT, UNK
     Route: 048
     Dates: start: 2008
  25. TAVEGIL [Concomitant]
     Active Substance: CLEMASTINE FUMARATE
     Indication: PROPHYLAXIS
     Dosage: UNK
     Route: 042
     Dates: start: 20180618
  26. PREDNISONE. [Suspect]
     Active Substance: PREDNISONE
     Dosage: 500 MG, UNK
     Route: 048
     Dates: start: 20180903, end: 20180907
  27. COTRIMOXAZOL [Concomitant]
     Active Substance: SULFAMETHOXAZOLE\TRIMETHOPRIM
     Indication: PROPHYLAXIS
     Dosage: UNK
     Route: 048
     Dates: start: 20180618
  28. METOPROLOL. [Concomitant]
     Active Substance: METOPROLOL
     Indication: HYPERTENSION
     Dosage: UNK
     Route: 048
     Dates: start: 2008
  29. APREPITANT. [Concomitant]
     Active Substance: APREPITANT
     Indication: PROPHYLAXIS
     Dosage: UNK
     Route: 048
     Dates: start: 20180618
  30. VINCRISTINE [Suspect]
     Active Substance: VINCRISTINE
     Dosage: 2 MG, UNK
     Route: 041
     Dates: start: 20180723, end: 20180723
  31. ZOLPIDEM [Concomitant]
     Active Substance: ZOLPIDEM\ZOLPIDEM TARTRATE
     Indication: PRODUCT USED FOR UNKNOWN INDICATION
     Dosage: UNK
     Route: 048
     Dates: start: 2008
  32. PREDNISONE. [Suspect]
     Active Substance: PREDNISONE
     Indication: PRODUCT USED FOR UNKNOWN INDICATION
     Dosage: 100 MG, UNK
     Route: 048
     Dates: start: 20180618, end: 20180622
  33. DEXAMETHASONE. [Concomitant]
     Active Substance: DEXAMETHASONE
     Indication: PROPHYLAXIS
     Dosage: UNK
     Route: 042
     Dates: start: 20180618

REACTIONS (6)
  - Atrial fibrillation [Recovered/Resolved]
  - Pancytopenia [Recovered/Resolved]
  - Blood uric acid increased [Not Recovered/Not Resolved]
  - Pancytopenia [Recovered/Resolved]
  - Cardiac failure [Recovered/Resolved]
  - Gastrointestinal haemorrhage [Recovered/Resolved]

NARRATIVE: CASE EVENT DATE: 20180702
